FAERS Safety Report 5042902-1 (Version None)
Quarter: 2006Q3

REPORT INFORMATION
  Report Type: 
  Country: None (occurrence: None)
  Receive Date: 20060705
  Receipt Date: 20060629
  Transmission Date: 20061208
  Serious: Yes (Death, Hospitalization)
  Sender: FDA-Public Use
  Company Number: FR-AVENTIS-200612333FR

PATIENT
  Age: 85 Year
  Sex: Male

DRUGS (5)
  1. RIFADIN [Suspect]
     Indication: PULMONARY TUBERCULOSIS
     Route: 048
     Dates: start: 20060403
  2. PIRILENE [Suspect]
     Indication: PULMONARY TUBERCULOSIS
     Route: 048
     Dates: start: 20060403, end: 20060414
  3. RIMIFON [Suspect]
     Indication: PULMONARY TUBERCULOSIS
     Route: 048
     Dates: start: 20060403, end: 20060414
  4. RIMIFON [Suspect]
     Route: 048
     Dates: start: 20060415
  5. MYAMBUTOL [Suspect]
     Indication: PULMONARY TUBERCULOSIS
     Route: 048
     Dates: start: 20060403

REACTIONS (8)
  - ANOREXIA [None]
  - BLOOD ALKALINE PHOSPHATASE INCREASED [None]
  - GENERAL PHYSICAL HEALTH DETERIORATION [None]
  - HEPATITIS [None]
  - HEPATOCELLULAR DAMAGE [None]
  - JAUNDICE [None]
  - NAUSEA [None]
  - VOMITING [None]
